FAERS Safety Report 14434779 (Version 1)
Quarter: 2018Q1

REPORT INFORMATION
  Report Type: Spontaneous
  Country: US (occurrence: US)
  Receive Date: 20180125
  Receipt Date: 20180125
  Transmission Date: 20180509
  Serious: Yes (Other)
  Sender: FDA-Public Use
  Company Number: US-TORRENT-00003482

PATIENT
  Sex: Male

DRUGS (1)
  1. MINOCYCLINE HYDROCHLORIDE. [Suspect]
     Active Substance: MINOCYCLINE HYDROCHLORIDE
     Indication: PRODUCT USED FOR UNKNOWN INDICATION

REACTIONS (6)
  - Idiopathic intracranial hypertension [Unknown]
  - Headache [Unknown]
  - Arthralgia [Unknown]
  - Product quality issue [Unknown]
  - Tooth erosion [Unknown]
  - Vision blurred [Unknown]
